FAERS Safety Report 8756231 (Version 1)
Quarter: 2012Q4

REPORT INFORMATION
  Report Type: 
  Country: GB (occurrence: GB)
  Receive Date: 20120828
  Receipt Date: 20120828
  Transmission Date: 20130627
  Serious: Yes (Other)
  Sender: FDA-Public Use
  Company Number: PHFR2012GB004666

PATIENT
  Age: 81 Year
  Sex: Male

DRUGS (3)
  1. ZOMETA [Suspect]
     Indication: MULTIPLE MYELOMA
     Dosage: 4 mg, UNK
     Route: 042
     Dates: start: 20111214, end: 20120725
  2. DEXAMETHASONE [Suspect]
     Indication: MULTIPLE MYELOMA
     Dosage: 20 mg, UNK
     Route: 048
  3. LENALIDOMIDE [Concomitant]
     Indication: MULTIPLE MYELOMA
     Dosage: 25 mg, UNK

REACTIONS (1)
  - Osteonecrosis of jaw [Not Recovered/Not Resolved]
